FAERS Safety Report 14616391 (Version 3)
Quarter: 2018Q1

REPORT INFORMATION
  Report Type: Spontaneous
  Country: US (occurrence: US)
  Receive Date: 20180309
  Receipt Date: 20180328
  Transmission Date: 20180509
  Serious: Yes (Other)
  Sender: FDA-Public Use
  Company Number: US-PFIZER INC-2018095090

PATIENT
  Age: 56 Year
  Sex: Female

DRUGS (1)
  1. ESTRING [Suspect]
     Active Substance: ESTRADIOL
     Dosage: 2 MG (7.5MCG PER 24 HOURS), EVERY 3 MONTHS
     Route: 067

REACTIONS (1)
  - Vaginal odour [Unknown]

NARRATIVE: CASE EVENT DATE: 2018
